FAERS Safety Report 6758673-4 (Version None)
Quarter: 2010Q2

REPORT INFORMATION
  Report Type: 
  Country: None (occurrence: None)
  Receive Date: 20100607
  Receipt Date: 20100525
  Transmission Date: 20101027
  Serious: Yes (Hospitalization)
  Sender: FDA-Public Use
  Company Number: US-BAYER-201023701NA

PATIENT
  Age: 65 Year
  Sex: Female

DRUGS (18)
  1. FLUDARA [Suspect]
     Indication: ACUTE MYELOID LEUKAEMIA
     Dosage: TOTAL DAILY DOSE: 64 MG
     Route: 042
     Dates: start: 20091229, end: 20100101
  2. NEUPOGEN [Suspect]
     Indication: ACUTE MYELOID LEUKAEMIA
     Dosage: TOTAL DAILY DOSE: 600 ?G
     Route: 058
     Dates: start: 20091226, end: 20091231
  3. PLERIXAFOR [Suspect]
     Indication: ACUTE MYELOID LEUKAEMIA
     Dosage: TOTAL DAILY DOSE: 13968 ?G
     Route: 058
     Dates: start: 20091228, end: 20091231
  4. BUSULFEX [Suspect]
     Indication: ACUTE MYELOID LEUKAEMIA
     Dosage: TOTAL DAILY DOSE: 209 MG
     Route: 042
     Dates: start: 20091229, end: 20100101
  5. TRIAMCINOLONE [Concomitant]
  6. ZOFRAN [Concomitant]
  7. BACTRIM [Concomitant]
  8. CALCIUM CARBONATE [Concomitant]
  9. FOLIC ACID [Concomitant]
  10. LEVAQUIN [Concomitant]
  11. MAGNESIUM OXIDE [Concomitant]
  12. NORVASC [Concomitant]
  13. PROGRAF [Concomitant]
  14. PROTONIX [Concomitant]
  15. VAGINAL LUBRICANT [Concomitant]
  16. VALTREX [Concomitant]
  17. VITAMIN D [Concomitant]
  18. ZYRTEC [Concomitant]

REACTIONS (2)
  - FALL [None]
  - PYREXIA [None]
